FAERS Safety Report 23363419 (Version 1)
Quarter: 2024Q1

REPORT INFORMATION
  Report Type: Other
  Country: JP (occurrence: JP)
  Receive Date: 20240103
  Receipt Date: 20240103
  Transmission Date: 20240410
  Serious: Yes (Hospitalization, Other)
  Sender: FDA-Public Use
  Company Number: JP-Alcami_Corporation-USA-POI0581202300008

PATIENT
  Age: 57 Year
  Sex: Female
  Weight: 32 kg

DRUGS (4)
  1. AZASAN [Suspect]
     Active Substance: AZATHIOPRINE
     Indication: Interstitial lung disease
     Route: 048
     Dates: start: 2012, end: 2023
  2. PREDNISOLONE [Concomitant]
     Active Substance: PREDNISOLONE
     Indication: Interstitial lung disease
     Dates: start: 2012
  3. NINTENDANIB [Concomitant]
     Indication: Interstitial lung disease
     Dates: start: 2021
  4. OXYGEN [Concomitant]
     Active Substance: OXYGEN
     Indication: Interstitial lung disease
     Dates: start: 2021

REACTIONS (1)
  - Posterior reversible encephalopathy syndrome [Recovered/Resolved]

NARRATIVE: CASE EVENT DATE: 20230101
